FAERS Safety Report 19096705 (Version 1)
Quarter: 2021Q2

REPORT INFORMATION
  Report Type: Spontaneous
  Country: US (occurrence: US)
  Receive Date: 20210405
  Receipt Date: 20210405
  Transmission Date: 20210717
  Serious: Yes (Hospitalization)
  Sender: FDA-Public Use
  Company Number: None

PATIENT
  Age: 52 Year
  Sex: Female
  Weight: 104.4 kg

DRUGS (6)
  1. ANASTRAZOLE 1MG [Concomitant]
     Active Substance: ANASTROZOLE
  2. OSTEO BI FLEX TRIPLE STRENGTH [Concomitant]
  3. KISQALI [Suspect]
     Active Substance: RIBOCICLIB
     Indication: BREAST CANCER FEMALE
     Dosage: ?          OTHER FREQUENCY:QDX21 DAYS, 7OFF;?
     Route: 048
     Dates: start: 20180714
  4. MAGNEBIND 200  450?200MG [Concomitant]
  5. VITAMIN C [Concomitant]
     Active Substance: ASCORBIC ACID
  6. MAGNESIUM 200MG [Concomitant]

REACTIONS (1)
  - COVID-19 [None]

NARRATIVE: CASE EVENT DATE: 20210322
